FAERS Safety Report 9712622 (Version 1)
Quarter: 2013Q4

REPORT INFORMATION
  Report Type: Spontaneous
  Country: US (occurrence: US)
  Receive Date: 20131126
  Receipt Date: 20131126
  Transmission Date: 20140711
  Serious: No
  Sender: FDA-Public Use
  Company Number: US-BRISTOL-MYERS SQUIBB COMPANY-19206937

PATIENT
  Age: 59 Year
  Sex: Female
  Weight: 87.07 kg

DRUGS (3)
  1. BYDUREON [Suspect]
     Indication: TYPE 2 DIABETES MELLITUS
     Dosage: PRESCRIPTION #:18-1721109
  2. METFORMIN [Concomitant]
     Route: 048
  3. HUMULIN 70/30 [Concomitant]
     Dosage: 1DF:30 UNITS
     Route: 058

REACTIONS (3)
  - Injection site extravasation [Recovered/Resolved]
  - Injection site pain [Unknown]
  - Underdose [Unknown]
